FAERS Safety Report 21462516 (Version 1)
Quarter: 2022Q4

REPORT INFORMATION
  Report Type: Spontaneous
  Country: US (occurrence: None)
  Receive Date: 20221014
  Receipt Date: 20221014
  Transmission Date: 20230113
  Serious: Yes (Hospitalization)
  Sender: FDA-Public Use
  Company Number: None

PATIENT
  Age: 48 Year
  Sex: Male

DRUGS (2)
  1. HUMIRA [Suspect]
     Active Substance: ADALIMUMAB
     Indication: Psoriasis
     Dosage: 40 MG/0.4ML  SUBCUTANEOUS?INJECT 0.4 ML INTO THE SKIN EVERY OTHER WEEK? ?
     Route: 058
     Dates: start: 20181027
  2. HUMIRA [Suspect]
     Active Substance: ADALIMUMAB
     Dosage: FREQUENCY : EVERY OTHER WEEK;?
     Route: 058

REACTIONS (2)
  - Surgery [None]
  - Intentional dose omission [None]

NARRATIVE: CASE EVENT DATE: 20220918
